FAERS Safety Report 4656714-1 (Version None)
Quarter: 2005Q2

REPORT INFORMATION
  Report Type: 
  Country: None (occurrence: None)
  Receive Date: 20050506
  Receipt Date: 20050427
  Transmission Date: 20051028
  Serious: Yes (Other)
  Sender: FDA-Public Use
  Company Number: CAP05000155

PATIENT
  Sex: 0

DRUGS (1)
  1. ACTONEL [Suspect]
     Dosage: 5 MG, ORAL
     Route: 048

REACTIONS (1)
  - COLITIS ULCERATIVE [None]
